FAERS Safety Report 6932731-3 (Version None)
Quarter: 2010Q3

REPORT INFORMATION
  Report Type: 
  Country: None (occurrence: None)
  Receive Date: 20100819
  Receipt Date: 20100810
  Transmission Date: 20110219
  Serious: Yes (Death, Hospitalization)
  Sender: FDA-Public Use
  Company Number: DE-AMGEN-US407654

PATIENT
  Sex: Female

DRUGS (5)
  1. ENBREL [Suspect]
     Indication: PRODUCT USED FOR UNKNOWN INDICATION
     Dosage: DOSE AND FREQUENCY UNKNOWN
     Route: 058
     Dates: start: 20030501, end: 20090701
  2. LANTAREL [Suspect]
     Indication: PRODUCT USED FOR UNKNOWN INDICATION
     Dosage: DOSE AND FREQUENCY UNKNOWN
     Route: 065
     Dates: start: 19980901, end: 20080201
  3. PREDNISOLONE [Suspect]
     Indication: PRODUCT USED FOR UNKNOWN INDICATION
     Route: 048
     Dates: end: 20090701
  4. BONDIOL [Concomitant]
     Route: 048
     Dates: end: 20090701
  5. TRAMADOL [Concomitant]
     Dosage: 5-10 DROPS AS NEEDED
     Route: 048
     Dates: end: 20090701

REACTIONS (4)
  - CHOLECYSTITIS [None]
  - DIVERTICULUM [None]
  - GALLBLADDER PERFORATION [None]
  - INTRA-ABDOMINAL HAEMORRHAGE [None]
